FAERS Safety Report 25061375 (Version 2)
Quarter: 2025Q1

REPORT INFORMATION
  Report Type: Report from Study
  Country: CA (occurrence: CA)
  Receive Date: 20250311
  Receipt Date: 20250328
  Transmission Date: 20250409
  Serious: Yes (Other)
  Sender: ABBVIE
  Company Number: CA-ABBVIE-6166057

PATIENT
  Age: 23 Year
  Sex: Female

DRUGS (2)
  1. RINVOQ [Suspect]
     Active Substance: UPADACITINIB
     Indication: Crohn^s disease
     Route: 048
     Dates: start: 20250204
  2. RINVOQ [Suspect]
     Active Substance: UPADACITINIB
     Indication: Crohn^s disease
     Route: 048

REACTIONS (6)
  - Large intestinal haemorrhage [Unknown]
  - Constipation [Unknown]
  - Vomiting [Unknown]
  - Large intestinal ulcer [Unknown]
  - Sensitive skin [Unknown]
  - Pain [Unknown]

NARRATIVE: CASE EVENT DATE: 20250101
